FAERS Safety Report 5318999-8 (Version None)
Quarter: 2007Q1

REPORT INFORMATION
  Report Type: 
  Country: None (occurrence: None)
  Receive Date: 20070202
  Receipt Date: 20061003
  Transmission Date: 20070707
  Serious: No
  Sender: FDA-Public Use
  Company Number: 251624

PATIENT
  Age: 40 Year
  Sex: Male
  Weight: 76.2 kg

DRUGS (1)
  1. NOVOLOG [Suspect]
     Indication: DIABETES MELLITUS INSULIN-DEPENDENT
     Dosage: SEE IMAGE
     Route: 058
     Dates: start: 20010301, end: 20020301

REACTIONS (1)
  - BLOOD GLUCOSE DECREASED [None]
